FAERS Safety Report 25026055 (Version 1)
Quarter: 2025Q1

REPORT INFORMATION
  Report Type: Spontaneous
  Country: US (occurrence: US)
  Receive Date: 20250301
  Receipt Date: 20250301
  Transmission Date: 20250408
  Serious: Yes (Death, Disabling, Other)
  Sender: CHATTEM
  Company Number: US-OPELLA-2025OHG005527

PATIENT
  Sex: Male

DRUGS (1)
  1. GOLD BOND ORIGINAL STRENGTH [Suspect]
     Active Substance: MENTHOL
     Indication: Product used for unknown indication
     Route: 065

REACTIONS (7)
  - Mesothelioma [Fatal]
  - Acute respiratory failure [Fatal]
  - Hypertensive heart disease [Fatal]
  - Hypoxia [Fatal]
  - Cardiac failure congestive [Fatal]
  - Dementia [Fatal]
  - Exposure to chemical pollution [Unknown]
